FAERS Safety Report 17565439 (Version 2)
Quarter: 2020Q2

REPORT INFORMATION
  Report Type: Spontaneous
  Country: US (occurrence: US)
  Receive Date: 20200320
  Receipt Date: 20200505
  Transmission Date: 20200713
  Serious: No
  Sender: FDA-Public Use
  Company Number: US-PFIZER INC-2020121018

PATIENT
  Age: 52 Year
  Sex: Female

DRUGS (1)
  1. GENOTROPIN [Suspect]
     Active Substance: SOMATROPIN
     Dosage: 0.4 MG, DAILY

REACTIONS (5)
  - Underdose [Unknown]
  - Insulin-like growth factor abnormal [Unknown]
  - Depression [Not Recovered/Not Resolved]
  - Device issue [Unknown]
  - Anxiety [Not Recovered/Not Resolved]
